FAERS Safety Report 17842483 (Version 1)
Quarter: 2020Q2

REPORT INFORMATION
  Report Type: Spontaneous
  Country: US (occurrence: US)
  Receive Date: 20200529
  Receipt Date: 20200529
  Transmission Date: 20200714
  Serious: Yes (Other)
  Sender: FDA-Public Use
  Company Number: US-GILEAD-2020-0468473

PATIENT
  Age: 59 Year
  Sex: Female
  Weight: 84.1 kg

DRUGS (34)
  1. LASIX [Concomitant]
     Active Substance: FUROSEMIDE
  2. LOVENOX [Concomitant]
     Active Substance: ENOXAPARIN SODIUM
  3. FENTANYL. [Concomitant]
     Active Substance: FENTANYL
  4. HYDROMORPHONE [Concomitant]
     Active Substance: HYDROMORPHONE
  5. VITAMIN D3 [Concomitant]
     Active Substance: CHOLECALCIFEROL
  6. CALCIUM GLUCONATE. [Concomitant]
     Active Substance: CALCIUM GLUCONATE
  7. AMIDATE [ETOMIDATE] [Concomitant]
  8. ZEMURON [Concomitant]
     Active Substance: ROCURONIUM BROMIDE
  9. REMDESIVIR. [Suspect]
     Active Substance: REMDESIVIR
     Indication: COVID-19
     Dosage: 200 MG, ONCE
     Route: 042
     Dates: start: 20200512, end: 20200512
  10. CLOZARIL [Concomitant]
     Active Substance: CLOZAPINE
  11. LEVAQUIN [Concomitant]
     Active Substance: LEVOFLOXACIN
  12. LEVOPHED [Concomitant]
     Active Substance: NOREPINEPHRINE BITARTRATE
  13. ANCEF [Concomitant]
     Active Substance: CEFAZOLIN SODIUM
  14. PROTONIX [OMEPRAZOLE] [Concomitant]
     Active Substance: OMEPRAZOLE
  15. FLAGYL [Concomitant]
     Active Substance: METRONIDAZOLE\METRONIDAZOLE HYDROCHLORIDE
  16. ACETAMINOPHEN. [Concomitant]
     Active Substance: ACETAMINOPHEN
  17. ZOFRAN [Concomitant]
     Active Substance: ONDANSETRON HYDROCHLORIDE
  18. TITRALAC [CALCIUM CARBONATE] [Concomitant]
  19. MIRALAX [Concomitant]
     Active Substance: POLYETHYLENE GLYCOL 3350
  20. QUELICIN [Concomitant]
     Active Substance: SUCCINYLCHOLINE CHLORIDE
  21. VERSED [Concomitant]
     Active Substance: MIDAZOLAM HYDROCHLORIDE
  22. ROCEPHIN [CEFTRIAXONE] [Concomitant]
  23. POTASSIUM BICARBONATE. [Concomitant]
     Active Substance: POTASSIUM BICARBONATE
  24. MAGNESIUM SULFATE. [Concomitant]
     Active Substance: MAGNESIUM SULFATE
  25. POTASSIUM CHLORIDE. [Concomitant]
     Active Substance: POTASSIUM CHLORIDE
  26. HUMULIN R [Concomitant]
     Active Substance: INSULIN HUMAN
  27. VANCOMYCIN [Concomitant]
     Active Substance: VANCOMYCIN
  28. ZENPEP [Concomitant]
     Active Substance: PANCRELIPASE AMYLASE\PANCRELIPASE LIPASE\PANCRELIPASE PROTEASE
  29. PRILOSEC [Concomitant]
     Active Substance: OMEPRAZOLE MAGNESIUM
  30. SEROQUEL [Concomitant]
     Active Substance: QUETIAPINE FUMARATE
  31. REMDESIVIR. [Suspect]
     Active Substance: REMDESIVIR
     Dosage: 100 MG, QD
     Route: 042
     Dates: start: 20200513, end: 20200518
  32. BENADRYL [Concomitant]
     Active Substance: DIPHENHYDRAMINE HYDROCHLORIDE
  33. PROPOFOL. [Concomitant]
     Active Substance: PROPOFOL
  34. HUMALOG [Concomitant]
     Active Substance: INSULIN LISPRO

REACTIONS (1)
  - Transaminases increased [Unknown]

NARRATIVE: CASE EVENT DATE: 20200519
